FAERS Safety Report 8336417-2 (Version None)
Quarter: 2012Q2

REPORT INFORMATION
  Report Type: 
  Country: None (occurrence: None)
  Receive Date: 20120504
  Receipt Date: 20120501
  Transmission Date: 20120825
  Serious: Yes (Hospitalization, Other)
  Sender: FDA-Public Use
  Company Number: PHEH2010US03169

PATIENT
  Sex: Male

DRUGS (12)
  1. NEXIUM [Concomitant]
  2. LYRICA [Concomitant]
  3. GLEEVEC [Suspect]
     Indication: CHRONIC MYELOID LEUKAEMIA
     Dosage: 400 MG, QD
     Route: 048
  4. GLEEVEC [Suspect]
     Indication: HYPERTENSION
     Dosage: 100 MG, TID
     Route: 048
     Dates: start: 20100730
  5. LIPITOR [Concomitant]
  6. METFORMIN HCL [Concomitant]
  7. NIASPAN [Concomitant]
  8. ASPIRIN [Concomitant]
  9. VITAMIN B-12 [Concomitant]
  10. TRICOR [Concomitant]
  11. LISINOPRIL [Concomitant]
  12. METOPROLOL TARTRATE [Concomitant]

REACTIONS (9)
  - ANAEMIA [None]
  - NEOPLASM MALIGNANT [None]
  - GASTROINTESTINAL HAEMORRHAGE [None]
  - HAEMATOCHEZIA [None]
  - EYE OEDEMA [None]
  - GASTRIC PERFORATION [None]
  - NAUSEA [None]
  - PANCREATIC CARCINOMA [None]
  - GASTROINTESTINAL ULCER [None]
